FAERS Safety Report 5681937-2 (Version None)
Quarter: 2008Q1

REPORT INFORMATION
  Report Type: 
  Country: None (occurrence: None)
  Receive Date: 20080327
  Receipt Date: 20070828
  Transmission Date: 20080703
  Serious: Yes (Other)
  Sender: FDA-Public Use
  Company Number: US-BAYER-US-2007-011130

PATIENT
  Age: 32 Year
  Sex: Female
  Weight: 76 kg

DRUGS (3)
  1. MIRENA [Suspect]
     Route: 015
     Dates: start: 20050617, end: 20061227
  2. ALBUTEROL [Concomitant]
     Indication: LUNG DISORDER
  3. PARAGARD [Concomitant]

REACTIONS (2)
  - ECTOPIC PREGNANCY [None]
  - FALLOPIAN TUBE PERFORATION [None]
